FAERS Safety Report 15017976 (Version 4)
Quarter: 2018Q3

REPORT INFORMATION
  Report Type: Report from Study
  Country: None (occurrence: AU)
  Receive Date: 20180615
  Receipt Date: 20180725
  Transmission Date: 20181010
  Serious: Yes (Hospitalization, Other)
  Sender: FDA-Public Use
  Company Number: AU-ABBVIE-18S-008-2386834-00

PATIENT
  Sex: Male

DRUGS (3)
  1. DASABUVIR [Suspect]
     Active Substance: DASABUVIR
     Indication: PRODUCT USED FOR UNKNOWN INDICATION
     Route: 065
  2. INTERFERON [Suspect]
     Active Substance: INTERFERON
     Indication: PRODUCT USED FOR UNKNOWN INDICATION
     Route: 065
  3. RITONAVIR. [Suspect]
     Active Substance: RITONAVIR
     Indication: PRODUCT USED FOR UNKNOWN INDICATION
     Route: 048
     Dates: start: 2012

REACTIONS (9)
  - Malaise [Recovered/Resolved]
  - Feeling drunk [Unknown]
  - Asthenia [Recovered/Resolved]
  - Bedridden [Recovered/Resolved]
  - Hepatic function abnormal [Recovered/Resolved]
  - Impaired work ability [Unknown]
  - Hepatic failure [Recovered/Resolved]
  - Adverse drug reaction [Recovered/Resolved]
  - Hepatic encephalopathy [Unknown]
